FAERS Safety Report 20110147 (Version 3)
Quarter: 2022Q1

REPORT INFORMATION
  Report Type: Report from Study
  Country: US (occurrence: US)
  Receive Date: 20211124
  Receipt Date: 20220210
  Transmission Date: 20220423
  Serious: Yes (Hospitalization)
  Sender: FDA-Public Use
  Company Number: US-PFIZER INC-202101566734

PATIENT
  Age: 9 Year
  Sex: Male
  Weight: 37.5 kg

DRUGS (3)
  1. TEMSIROLIMUS [Suspect]
     Active Substance: TEMSIROLIMUS
     Dosage: OVER 30-60 MINUTES ON DAYS 1, 8, AND 15 OF CYCLES 8, 9 AND 10
     Route: 042
     Dates: start: 20210920, end: 20210927
  2. VINCRISTINE SULFATE [Suspect]
     Active Substance: VINCRISTINE SULFATE
     Dosage: OVER 1MIN ON DAY 1 OF CYCLES 5 , 10; ON DAYS 1, 8 OF CYCLES 6, 7 ,9; ON DAYS 1, 8, 15 OF CYCLE 8
     Route: 042
     Dates: start: 20210920, end: 20210927
  3. CYCLOPHOSPHAMIDE [Suspect]
     Active Substance: CYCLOPHOSPHAMIDE
     Dosage: OVER 60 M (DAY 1 OF CYCLES 5, 8,10)
     Route: 042
     Dates: start: 20210913, end: 20210913

REACTIONS (1)
  - Gastric haemorrhage [Not Recovered/Not Resolved]

NARRATIVE: CASE EVENT DATE: 20211003
